FAERS Safety Report 10283951 (Version 1)
Quarter: 2014Q3

REPORT INFORMATION
  Report Type: Spontaneous
  Country: LU (occurrence: AT)
  Receive Date: 20140708
  Receipt Date: 20140708
  Transmission Date: 20150326
  Serious: Yes (Death)
  Sender: FDA-Public Use
  Company Number: AT-ASTRAZENECA-2014SE48464

PATIENT
  Age: 2 Year
  Sex: Female

DRUGS (2)
  1. PROPOFOL. [Suspect]
     Active Substance: PROPOFOL
     Indication: ANAESTHESIA
     Dosage: INCREASED DOSE
     Route: 042
  2. PROPOFOL. [Suspect]
     Active Substance: PROPOFOL
     Indication: ANAESTHESIA
     Route: 042

REACTIONS (1)
  - Propofol infusion syndrome [Fatal]

NARRATIVE: CASE EVENT DATE: 2011
